FAERS Safety Report 24293906 (Version 1)
Quarter: 2024Q3

REPORT INFORMATION
  Report Type: Spontaneous
  Country: US (occurrence: None)
  Receive Date: 20240906
  Receipt Date: 20240906
  Transmission Date: 20241017
  Serious: No
  Sender: DOMPE FARMACEUTICI
  Company Number: US-FARMAPROD-202308-202403-0841

PATIENT
  Age: 67 Year
  Sex: Female
  Weight: 74.39 kg

DRUGS (10)
  1. OXERVATE [Suspect]
     Active Substance: CENEGERMIN-BKBJ
     Indication: Neurotrophic keratopathy
     Route: 047
     Dates: start: 20240307
  2. OXERVATE [Suspect]
     Active Substance: CENEGERMIN-BKBJ
  3. ARED EYE VITAMINS [Concomitant]
  4. FISH OIL [Concomitant]
     Active Substance: FISH OIL
  5. CALCIUM 600-VIT D3-MINERALS [Concomitant]
  6. METOPROLOL SUCCINATE [Concomitant]
     Active Substance: METOPROLOL SUCCINATE
  7. BIOTIN [Concomitant]
     Active Substance: BIOTIN
  8. AZELAIC ACID [Concomitant]
     Active Substance: AZELAIC ACID
  9. DOXYCYCLINE [Concomitant]
     Active Substance: DOXYCYCLINE\DOXYCYCLINE HYCLATE
  10. RESTASIS [Concomitant]
     Active Substance: CYCLOSPORINE

REACTIONS (11)
  - Product administration error [Unknown]
  - Eyelid pain [Unknown]
  - Vision blurred [Not Recovered/Not Resolved]
  - Visual impairment [Unknown]
  - Photophobia [Not Recovered/Not Resolved]
  - Dry eye [Unknown]
  - Eye pain [Not Recovered/Not Resolved]
  - Erythema of eyelid [Unknown]
  - Periorbital swelling [Unknown]
  - Dry skin [Unknown]
  - Product dose omission issue [Unknown]

NARRATIVE: CASE EVENT DATE: 20240311
